FAERS Safety Report 7044610-4 (Version None)
Quarter: 2010Q3

REPORT INFORMATION
  Report Type: 
  Country: None (occurrence: None)
  Receive Date: 20100929
  Receipt Date: 20100715
  Transmission Date: 20110219
  Serious: No
  Sender: FDA-Public Use
  Company Number: US-WYE-H16258210

PATIENT
  Age: 50 Year
  Sex: Male
  Weight: 79.45 kg

DRUGS (10)
  1. PRISTIQ [Suspect]
     Indication: DEPRESSION
     Dosage: 50 MG 1X PER 1 DAY; 100 MG 1X PER 1 DAY
     Dates: start: 20100610, end: 20100714
  2. PRISTIQ [Suspect]
     Indication: DEPRESSION
     Dosage: 50 MG 1X PER 1 DAY; 100 MG 1X PER 1 DAY
     Dates: start: 20100715
  3. XANAX [Suspect]
     Indication: SLEEP DISORDER
  4. CARVEDILOL [Concomitant]
  5. PROTONIX [Concomitant]
  6. ASPIRIN [Concomitant]
  7. RAMIPRIL [Concomitant]
  8. PLAVIX [Concomitant]
  9. TRICOR [Concomitant]
  10. LIPITOR [Concomitant]

REACTIONS (5)
  - ASTHENIA [None]
  - DRUG EFFECT DECREASED [None]
  - HEADACHE [None]
  - INSOMNIA [None]
  - NAUSEA [None]
